FAERS Safety Report 10395994 (Version 1)
Quarter: 2014Q1

REPORT INFORMATION
  Report Type: Spontaneous
  Country: US (occurrence: None)
  Receive Date: 20130815
  Receipt Date: 20130815
  Transmission Date: 20141002
  Serious: Yes (Other)
  Sender: FDA-Public Use
  Company Number: ADR-2012-02281

PATIENT
  Age: 35 Year
  Sex: Male

DRUGS (1)
  1. LIORESAL INTRATHECAL (BACLOFEN INJECTION) 500 MCG/ML [Suspect]
     Indication: MUSCLE SPASTICITY
     Dosage: 326 MCG/DAY/INTRATHECAL
     Route: 037

REACTIONS (5)
  - Headache [None]
  - Pruritus [None]
  - Drug withdrawal syndrome [None]
  - Muscle spasticity [None]
  - Hypertonia [None]
